FAERS Safety Report 14807763 (Version 3)
Quarter: 2018Q2

REPORT INFORMATION
  Report Type: Report from Study
  Country: US (occurrence: US)
  Receive Date: 20180425
  Receipt Date: 20180612
  Transmission Date: 20180711
  Serious: Yes (Hospitalization)
  Sender: FDA-Public Use
  Company Number: US-ACTELION-A-NJ2016-146280

PATIENT
  Age: 70 Year
  Sex: Female
  Weight: 102.4 kg

DRUGS (3)
  1. TRACLEER [Suspect]
     Active Substance: BOSENTAN
     Indication: PULMONARY ARTERIAL HYPERTENSION
     Dosage: 125 MG, BID
     Route: 048
     Dates: start: 20090720
  2. ADEMPAS [Suspect]
     Active Substance: RIOCIGUAT
     Indication: PRODUCT USED FOR UNKNOWN INDICATION
     Route: 065
  3. CANNABIS SATIVA OIL [Suspect]
     Active Substance: CANNABIS SATIVA SUBSP. INDICA TOP
     Indication: MIGRAINE
     Dosage: UNK
     Route: 065
     Dates: start: 20180531

REACTIONS (19)
  - Sleep disorder [Unknown]
  - Dizziness [Unknown]
  - Haemorrhage [Unknown]
  - Peripheral swelling [Unknown]
  - Bilevel positive airway pressure [Unknown]
  - Neuropathy peripheral [Unknown]
  - Dysstasia [Unknown]
  - Bradyphrenia [Unknown]
  - Fall [Unknown]
  - Wound secretion [Unknown]
  - Epistaxis [Unknown]
  - Therapy non-responder [Unknown]
  - Loss of consciousness [Unknown]
  - Pulmonary hypertension [Unknown]
  - Condition aggravated [Unknown]
  - Memory impairment [Unknown]
  - Pain [Unknown]
  - Migraine [Recovered/Resolved]
  - Pain in extremity [Unknown]

NARRATIVE: CASE EVENT DATE: 20180326
